FAERS Safety Report 6435859-X (Version None)
Quarter: 2009Q4

REPORT INFORMATION
  Report Type: 
  Country: None (occurrence: None)
  Receive Date: 20091111
  Receipt Date: 20091029
  Transmission Date: 20100525
  Serious: No
  Sender: FDA-Public Use
  Company Number: US-ELI_LILLY_AND_COMPANY-US200910007566

PATIENT
  Age: 59 Year
  Sex: Female

DRUGS (3)
  1. CYMBALTA [Suspect]
     Indication: NEURALGIA
     Dosage: 1 D/F, DAILY (1/D)
     Dates: start: 20090201, end: 20090101
  2. CYMBALTA [Suspect]
     Dosage: 60 MG, DAILY (1/D)
     Dates: start: 20090101, end: 20090901
  3. PERPHENAZINE W/AMITRIPTYLINE [Concomitant]
     Indication: FIBROMYALGIA
     Dosage: 4 MG, EACH EVENING

REACTIONS (14)
  - ABDOMINAL DISTENSION [None]
  - ABDOMINAL PAIN [None]
  - ASTHENIA [None]
  - FLATULENCE [None]
  - HEPATIC STEATOSIS [None]
  - HOSTILITY [None]
  - HYPERHIDROSIS [None]
  - LIBIDO DECREASED [None]
  - MENTAL STATUS CHANGES [None]
  - NEPHROLITHIASIS [None]
  - ORGASM ABNORMAL [None]
  - PALPITATIONS [None]
  - PRURITUS [None]
  - RENAL DISORDER [None]
